FAERS Safety Report 6918723-9 (Version None)
Quarter: 2010Q3

REPORT INFORMATION
  Report Type: 
  Country: None (occurrence: None)
  Receive Date: 20100811
  Receipt Date: 20100802
  Transmission Date: 20110219
  Serious: No
  Sender: FDA-Public Use
  Company Number: US-JNJFOC-20100800854

PATIENT
  Sex: Female
  Weight: 81.65 kg

DRUGS (6)
  1. FENTANYL CITRATE [Suspect]
     Indication: PAIN
     Route: 062
  2. LYRICA [Concomitant]
     Indication: FIBROMYALGIA
     Route: 048
  3. OXYCODONE [Concomitant]
     Indication: BREAKTHROUGH PAIN
     Route: 048
  4. SKELAXIN [Concomitant]
     Indication: MUSCLE RELAXANT THERAPY
     Route: 048
  5. MOBIC [Concomitant]
     Indication: ANTIINFLAMMATORY THERAPY
     Dosage: 1-2 TABLETS A DAY
     Route: 048
  6. TIZANIDINE HCL [Concomitant]
     Indication: ANTIINFLAMMATORY THERAPY
     Route: 048

REACTIONS (1)
  - WRONG TECHNIQUE IN DRUG USAGE PROCESS [None]
